FAERS Safety Report 12883248 (Version 1)
Quarter: 2016Q4

REPORT INFORMATION
  Report Type: Spontaneous
  Country: IT (occurrence: IT)
  Receive Date: 20161025
  Receipt Date: 20161025
  Transmission Date: 20170207
  Serious: Yes (Other)
  Sender: FDA-Public Use
  Company Number: IT-MYLANLABS-2016M1045226

PATIENT

DRUGS (4)
  1. MIRTAZAPINA DOC [Interacting]
     Active Substance: MIRTAZAPINE
     Indication: DECREASED APPETITE
     Dosage: 0.5 DF, QD
     Route: 048
     Dates: start: 20160404, end: 20160709
  2. CONGESCOR [Interacting]
     Active Substance: BISOPROLOL
     Indication: CARDIAC FAILURE
     Dosage: 2 DF, QD
     Route: 048
     Dates: start: 20090930
  3. CARDIOASPIRIN [Concomitant]
     Active Substance: ASPIRIN
     Indication: PRODUCT USED FOR UNKNOWN INDICATION
     Dosage: 1 DF, UNK
     Route: 048
     Dates: start: 20090909, end: 20160711
  4. PANTOPRAZOLE [Suspect]
     Active Substance: PANTOPRAZOLE SODIUM
     Indication: OESOPHAGITIS
     Dosage: 40 MG, QD
     Route: 048
     Dates: start: 20150909

REACTIONS (10)
  - Somnolence [Recovering/Resolving]
  - Arthralgia [Recovering/Resolving]
  - Myalgia [Unknown]
  - Hypotension [Recovering/Resolving]
  - Abdominal discomfort [Unknown]
  - Drug interaction [Unknown]
  - Hyperhidrosis [Recovering/Resolving]
  - Dry mouth [Recovering/Resolving]
  - Posture abnormal [Unknown]
  - Weight increased [Recovering/Resolving]

NARRATIVE: CASE EVENT DATE: 2016
